FAERS Safety Report 10579251 (Version 1)
Quarter: 2014Q4

REPORT INFORMATION
  Report Type: Spontaneous
  Country: US (occurrence: US)
  Receive Date: 20141112
  Receipt Date: 20141112
  Transmission Date: 20150529
  Serious: No
  Sender: FDA-Public Use
  Company Number: US-BAYER-2014-162727

PATIENT
  Age: 26 Year
  Sex: Female

DRUGS (1)
  1. GADAVIST [Suspect]
     Active Substance: GADOBUTROL
     Indication: COMPUTERISED TOMOGRAM PELVIS
     Dosage: 7 ML, ONCE
     Dates: start: 20141028, end: 20141028

REACTIONS (1)
  - Nausea [None]

NARRATIVE: CASE EVENT DATE: 20141028
